FAERS Safety Report 16050653 (Version 1)
Quarter: 2019Q1

REPORT INFORMATION
  Report Type: Spontaneous
  Country: US (occurrence: US)
  Receive Date: 20190308
  Receipt Date: 20190308
  Transmission Date: 20190418
  Serious: No
  Sender: FDA-Public Use
  Company Number: US-MALLINCKRODT-T201803617

PATIENT
  Sex: Male

DRUGS (1)
  1. DEXTROAMPHETAMINE SULFATE. [Suspect]
     Active Substance: DEXTROAMPHETAMINE SULFATE
     Indication: ATTENTION DEFICIT/HYPERACTIVITY DISORDER
     Dosage: 20MG, 2 TABLETS DAILY
     Route: 048
     Dates: start: 20180815, end: 20180820

REACTIONS (4)
  - Nightmare [Unknown]
  - Vomiting [Unknown]
  - Hallucination [Unknown]
  - Withdrawal syndrome [Unknown]
